FAERS Safety Report 8378432-9 (Version None)
Quarter: 2012Q2

REPORT INFORMATION
  Report Type: 
  Country: None (occurrence: None)
  Receive Date: 20120522
  Receipt Date: 20111222
  Transmission Date: 20120825
  Serious: No
  Sender: FDA-Public Use
  Company Number: US-ASTRAZENECA-2011SE77938

PATIENT
  Age: 57 Year
  Sex: Female
  Weight: 58.1 kg

DRUGS (3)
  1. PRILOSEC [Suspect]
     Dosage: TWO TIMES A DAY
     Route: 048
     Dates: start: 20110901, end: 20111001
  2. CALCIUM CALTRATE PLUS VITAMIN D [Concomitant]
     Indication: BONE DISORDER
     Route: 048
  3. PRILOSEC [Suspect]
     Indication: GASTROOESOPHAGEAL REFLUX DISEASE
     Dosage: EVERY DAY
     Route: 048
     Dates: start: 20110801, end: 20110901

REACTIONS (5)
  - OROPHARYNGEAL PAIN [None]
  - THROAT IRRITATION [None]
  - DYSPHAGIA [None]
  - DRUG HYPERSENSITIVITY [None]
  - DRUG INEFFECTIVE [None]
